FAERS Safety Report 6431009-4 (Version None)
Quarter: 2009Q4

REPORT INFORMATION
  Report Type: 
  Country: None (occurrence: None)
  Receive Date: 20091106
  Receipt Date: 20091103
  Transmission Date: 20100525
  Serious: Yes (Death, Hospitalization)
  Sender: FDA-Public Use
  Company Number: BE-ABBOTT-09P-013-0560271-00

PATIENT
  Sex: Male

DRUGS (3)
  1. KALETRA [Suspect]
     Indication: HIV INFECTION
     Dosage: 400/200MG TWICE A DAY
     Route: 048
     Dates: start: 20090107
  2. VIREAD [Concomitant]
     Indication: DRUG USE FOR UNKNOWN INDICATION
     Dates: start: 20090107
  3. EMTRIVA [Concomitant]
     Indication: DRUG USE FOR UNKNOWN INDICATION
     Dates: start: 20090107

REACTIONS (5)
  - ABDOMINAL PAIN [None]
  - DECREASED APPETITE [None]
  - FEELING COLD [None]
  - HEPATIC NEOPLASM MALIGNANT [None]
  - WEIGHT DECREASED [None]
